FAERS Safety Report 6968363-0 (Version None)
Quarter: 2010Q3

REPORT INFORMATION
  Report Type: 
  Country: None (occurrence: None)
  Receive Date: 20100907
  Receipt Date: 20100825
  Transmission Date: 20110219
  Serious: Yes (Other)
  Sender: FDA-Public Use
  Company Number: US-SANOFI-AVENTIS-2010SA050756

PATIENT
  Age: 69 Year
  Sex: Male

DRUGS (3)
  1. MULTAQ [Suspect]
     Indication: ATRIAL FIBRILLATION
     Route: 048
     Dates: start: 20100815, end: 20100821
  2. PREVACID [Concomitant]
  3. BENICAR [Concomitant]

REACTIONS (2)
  - ANGIOEDEMA [None]
  - RASH [None]
